FAERS Safety Report 18594337 (Version 1)
Quarter: 2020Q4

REPORT INFORMATION
  Report Type: Report from Study
  Country: US (occurrence: US)
  Receive Date: 20201209
  Receipt Date: 20201209
  Transmission Date: 20210114
  Serious: Yes (Other)
  Sender: FDA-Public Use
  Company Number: US-ASTRAZENECA-2020SF61793

PATIENT
  Age: 27473 Day
  Sex: Female

DRUGS (1)
  1. LYNPARZA [Suspect]
     Active Substance: OLAPARIB
     Indication: OVARIAN CANCER
     Route: 048

REACTIONS (11)
  - Red cell distribution width increased [Unknown]
  - Haemoglobin decreased [Unknown]
  - White blood cell count abnormal [Unknown]
  - Fatigue [Not Recovered/Not Resolved]
  - Oxygen saturation decreased [Unknown]
  - Medical device site infection [Unknown]
  - Lymphocyte count abnormal [Unknown]
  - Nausea [Not Recovered/Not Resolved]
  - Medical device site discolouration [Not Recovered/Not Resolved]
  - Platelet count abnormal [Unknown]
  - Blood sodium decreased [Unknown]

NARRATIVE: CASE EVENT DATE: 20201123
